FAERS Safety Report 16884627 (Version 2)
Quarter: 2019Q4

REPORT INFORMATION
  Report Type: Spontaneous
  Country: IT (occurrence: IT)
  Receive Date: 20191004
  Receipt Date: 20191230
  Transmission Date: 20200122
  Serious: Yes (Hospitalization, Other)
  Sender: FDA-Public Use
  Company Number: IT-MYLANLABS-2019M1091390

PATIENT
  Age: 39 Year
  Sex: Female

DRUGS (10)
  1. CYCLOPHOSPHAMIDE. [Suspect]
     Active Substance: CYCLOPHOSPHAMIDE
     Indication: CENTRAL NERVOUS SYSTEM VASCULITIS
     Dosage: UNK
     Route: 042
  2. METHYLPREDNISOLONE. [Suspect]
     Active Substance: METHYLPREDNISOLONE
     Dosage: UNK
     Route: 042
  3. RITUXIMAB. [Suspect]
     Active Substance: RITUXIMAB
     Indication: CENTRAL NERVOUS SYSTEM VASCULITIS
     Dosage: UNK
     Route: 065
  4. METHYLPREDNISOLONE. [Suspect]
     Active Substance: METHYLPREDNISOLONE
     Indication: CENTRAL NERVOUS SYSTEM VASCULITIS
     Dosage: 1 GRAM, QD FOR 3 DAYS
     Route: 042
  5. METHYLPREDNISOLONE. [Suspect]
     Active Substance: METHYLPREDNISOLONE
     Dosage: 1 GRAM, QD FOR 3 DAYS
     Route: 042
  6. AZATHIOPRINE. [Suspect]
     Active Substance: AZATHIOPRINE
     Indication: CENTRAL NERVOUS SYSTEM VASCULITIS
     Dosage: 150 MILLIGRAM, QD
     Route: 065
  7. PREDNISONE. [Suspect]
     Active Substance: PREDNISONE
     Dosage: 25 MILLIGRAM, QD
     Route: 065
  8. CYCLOPHOSPHAMIDE. [Suspect]
     Active Substance: CYCLOPHOSPHAMIDE
     Dosage: UNK
     Route: 048
  9. PREDNISONE. [Suspect]
     Active Substance: PREDNISONE
     Indication: CENTRAL NERVOUS SYSTEM VASCULITIS
     Dosage: 50 MILLIGRAM, QD
     Route: 065
  10. MYCOPHENOLATE MOFETIL. [Suspect]
     Active Substance: MYCOPHENOLATE MOFETIL
     Indication: CENTRAL NERVOUS SYSTEM VASCULITIS
     Route: 065

REACTIONS (9)
  - Central nervous system vasculitis [Recovering/Resolving]
  - Product use in unapproved indication [Unknown]
  - Condition aggravated [Recovering/Resolving]
  - Confusional state [Recovering/Resolving]
  - Intentional product misuse [Unknown]
  - Headache [Recovering/Resolving]
  - Off label use [Unknown]
  - Hemiparesis [Recovering/Resolving]
  - Drug ineffective [Recovering/Resolving]
